FAERS Safety Report 17174073 (Version 1)
Quarter: 2019Q4

REPORT INFORMATION
  Report Type: Spontaneous
  Country: US (occurrence: US)
  Receive Date: 20191219
  Receipt Date: 20191219
  Transmission Date: 20200122
  Serious: No
  Sender: FDA-Public Use
  Company Number: US-PFIZER INC-2019517328

PATIENT
  Age: 85 Year
  Sex: Female
  Weight: 61.23 kg

DRUGS (3)
  1. ADVIL [Suspect]
     Active Substance: IBUPROFEN
     Indication: PAIN
     Dosage: 200 MG, UNK
  2. IBUPROFEN. [Concomitant]
     Active Substance: IBUPROFEN
     Dosage: UNK
  3. ADVIL [Suspect]
     Active Substance: IBUPROFEN
     Indication: PYREXIA

REACTIONS (4)
  - Arthritis [Unknown]
  - Poor quality product administered [Unknown]
  - Suspiciousness [Unknown]
  - Product physical issue [Unknown]
